FAERS Safety Report 17010526 (Version 1)
Quarter: 2019Q4

REPORT INFORMATION
  Report Type: Spontaneous
  Country: US (occurrence: US)
  Receive Date: 20191107
  Receipt Date: 20191107
  Transmission Date: 20200122
  Serious: Yes (Hospitalization)
  Sender: FDA-Public Use
  Company Number: None

PATIENT
  Sex: Male

DRUGS (6)
  1. AMLODIPINE [Concomitant]
     Active Substance: AMLODIPINE BESYLATE
  2. METFORMIN [Concomitant]
     Active Substance: METFORMIN HYDROCHLORIDE
  3. GLEEVEC [Suspect]
     Active Substance: IMATINIB MESYLATE
     Indication: MYELOID LEUKAEMIA
     Route: 048
     Dates: start: 20180116
  4. GLUCOS/CHOND [Concomitant]
  5. LISINOPRIL. [Concomitant]
     Active Substance: LISINOPRIL
  6. SMZ/TMP [Concomitant]
     Active Substance: SULFAMETHOXAZOLE\TRIMETHOPRIM

REACTIONS (2)
  - Blister [None]
  - Cellulitis [None]
